FAERS Safety Report 5007905-1 (Version None)
Quarter: 2006Q2

REPORT INFORMATION
  Report Type: 
  Country: None (occurrence: None)
  Receive Date: 20060522
  Receipt Date: 20060512
  Transmission Date: 20061013
  Serious: Yes (Death)
  Sender: FDA-Public Use
  Company Number: 2006UW09440

PATIENT
  Age: 55 Year
  Sex: Male

DRUGS (3)
  1. LIDOCAINE [Suspect]
     Route: 065
  2. PROPRANOLOL [Suspect]
  3. DORMONID [Concomitant]

REACTIONS (2)
  - ASPHYXIA [None]
  - COMPLETED SUICIDE [None]
